FAERS Safety Report 20069213 (Version 1)
Quarter: 2021Q4

REPORT INFORMATION
  Report Type: Report from Study
  Country: US (occurrence: US)
  Receive Date: 20211115
  Receipt Date: 20211115
  Transmission Date: 20220304
  Serious: Yes (Other)
  Sender: FDA-Public Use
  Company Number: US-TAKEDA-US201924418

PATIENT
  Sex: Female

DRUGS (1)
  1. HUMAN IMMUNOGLOBULIN G [Suspect]
     Active Substance: HUMAN IMMUNOGLOBULIN G
     Indication: Primary immunodeficiency syndrome
     Dosage: 30 GRAM, EVERY 4 WK
     Route: 042

REACTIONS (6)
  - Kidney infection [Unknown]
  - Sinusitis [Unknown]
  - Peripheral swelling [Unknown]
  - Pulmonary function test decreased [Unknown]
  - Blood pressure increased [Unknown]
  - Product dose omission issue [Unknown]
